FAERS Safety Report 11340283 (Version 1)
Quarter: 2015Q3

REPORT INFORMATION
  Report Type: Spontaneous
  Country: US (occurrence: None)
  Receive Date: 20150803
  Receipt Date: 20150803
  Transmission Date: 20151125
  Serious: No
  Sender: FDA-Public Use
  Company Number: None

PATIENT
  Age: 56 Year
  Sex: Female

DRUGS (1)
  1. VOTRIENT [Suspect]
     Active Substance: PAZOPANIB HYDROCHLORIDE
     Indication: RENAL CANCER
     Dosage: 4 TABLETS
     Route: 048
     Dates: start: 20130425

REACTIONS (3)
  - Fatigue [None]
  - Diarrhoea [None]
  - Hair colour changes [None]

NARRATIVE: CASE EVENT DATE: 20150731
